FAERS Safety Report 7008277-3 (Version None)
Quarter: 2010Q3

REPORT INFORMATION
  Report Type: 
  Country: None (occurrence: None)
  Receive Date: 20100922
  Receipt Date: 20100917
  Transmission Date: 20110219
  Serious: Yes (Hospitalization, Disabling)
  Sender: FDA-Public Use
  Company Number: A0796469A

PATIENT
  Age: 68 Year
  Sex: Female
  Weight: 72.7 kg

DRUGS (9)
  1. AVANDIA [Suspect]
     Dosage: 4MG PER DAY
     Route: 048
     Dates: start: 20001208, end: 20050220
  2. ALLOPURINOL [Concomitant]
  3. K LYTE [Concomitant]
  4. GLUCOPHAGE XR [Concomitant]
  5. LEVSINEX [Concomitant]
  6. SALICYLATE [Concomitant]
  7. NORTRIPTYLINE HCL [Concomitant]
  8. AVAPRO [Concomitant]
  9. LIPITOR [Concomitant]

REACTIONS (4)
  - CARDIAC FAILURE CONGESTIVE [None]
  - CEREBROVASCULAR ACCIDENT [None]
  - INTRACARDIAC THROMBUS [None]
  - TRANSIENT ISCHAEMIC ATTACK [None]
